FAERS Safety Report 9005639 (Version 1)
Quarter: 2013Q1

REPORT INFORMATION
  Report Type: Spontaneous
  Country: US (occurrence: US)
  Receive Date: 20130109
  Receipt Date: 20130109
  Transmission Date: 20140127
  Serious: Yes (Hospitalization, Other)
  Sender: FDA-Public Use
  Company Number: US-ABBOTT-13P-163-1032801-00

PATIENT
  Sex: Female

DRUGS (1)
  1. HUMIRA [Suspect]
     Indication: PRODUCT USED FOR UNKNOWN INDICATION

REACTIONS (10)
  - Transfusion [Unknown]
  - Drug ineffective [Unknown]
  - Hospitalisation [Unknown]
  - Colectomy [Unknown]
  - Feeling abnormal [Unknown]
  - Pelvic infection [Unknown]
  - Skin discolouration [Unknown]
  - Mobility decreased [Unknown]
  - Pain [Unknown]
  - Post procedural complication [Unknown]
